FAERS Safety Report 15340337 (Version 1)
Quarter: 2018Q3

REPORT INFORMATION
  Report Type: Spontaneous
  Country: US (occurrence: US)
  Receive Date: 20180831
  Receipt Date: 20180831
  Transmission Date: 20181010
  Serious: Yes (Other)
  Sender: FDA-Public Use
  Company Number: US-LPDUSPRD-20181576

PATIENT

DRUGS (8)
  1. LIDOCAINE HCL INJECTION, USP (0517?9402?01) [Suspect]
     Active Substance: LIDOCAINE HYDROCHLORIDE
     Dosage: 60 MG
     Route: 064
  2. FAMOTIDINE. [Concomitant]
     Active Substance: FAMOTIDINE
     Dosage: UNKNOWN
     Route: 064
  3. BETAMETHASONE SODIUM PHOS/BETAMETHASONE ACETATE INJ SUSP, USP (40042?0 [Concomitant]
     Active Substance: BETAMETHASONE ACETATE\BETAMETHASONE SODIUM PHOSPHATE
     Dosage: UNKNOWN
  4. NO DRUG NAME [Concomitant]
     Dosage: UNKNOWN
     Route: 064
  5. METOCLOPRAMIDE. [Concomitant]
     Active Substance: METOCLOPRAMIDE
     Dosage: UNKNOWN
     Route: 064
  6. PROPOFOL. [Suspect]
     Active Substance: PROPOFOL
     Dosage: 120 MG
     Route: 064
  7. FENTANYL. [Suspect]
     Active Substance: FENTANYL
     Dosage: 50 MCG
     Route: 064
  8. SUCCINYLCHOLINE [Suspect]
     Active Substance: SUCCINYLCHOLINE
     Dosage: 100 MG
     Route: 064

REACTIONS (3)
  - Product use in unapproved indication [Unknown]
  - Foetal heart rate deceleration abnormality [Unknown]
  - Foetal exposure during pregnancy [Unknown]
